FAERS Safety Report 9547570 (Version 1)
Quarter: 2013Q3

REPORT INFORMATION
  Report Type: Spontaneous
  Country: US (occurrence: None)
  Receive Date: 20130920
  Receipt Date: 20130920
  Transmission Date: 20140515
  Serious: Yes (Other)
  Sender: FDA-Public Use
  Company Number: CO-UL-US-2013-002

PATIENT
  Age: 24 Year
  Sex: Female

DRUGS (1)
  1. BENZYL ALCOHOL [Suspect]
     Indication: EPIDURAL INJECTION

REACTIONS (2)
  - Paralysis flaccid [None]
  - Exposure during pregnancy [None]
